FAERS Safety Report 6244004-5 (Version None)
Quarter: 2009Q2

REPORT INFORMATION
  Report Type: 
  Country: None (occurrence: None)
  Receive Date: 20090623
  Receipt Date: 20090616
  Transmission Date: 20091009
  Serious: Yes (Other)
  Sender: FDA-Public Use
  Company Number: CHNY2009FR02453

PATIENT
  Age: 47 Year

DRUGS (1)
  1. HYOSCINE HBR HYT [Suspect]
     Indication: INCREASED BRONCHIAL SECRETION
     Dosage: 1 PATCH, TRANSDERMAL
     Route: 062

REACTIONS (2)
  - ANTICHOLINERGIC SYNDROME [None]
  - THERAPEUTIC RESPONSE UNEXPECTED [None]
